FAERS Safety Report 10045434 (Version 1)
Quarter: 2014Q1

REPORT INFORMATION
  Report Type: Spontaneous
  Country: US (occurrence: US)
  Receive Date: 20140328
  Receipt Date: 20140328
  Transmission Date: 20141002
  Serious: Yes (Other)
  Sender: FDA-Public Use
  Company Number: US-PFIZER INC-2014087188

PATIENT
  Sex: Female

DRUGS (1)
  1. LYRICA [Suspect]
     Indication: AUTOIMMUNE NEUROPATHY
     Dosage: UNK
     Dates: start: 2010

REACTIONS (4)
  - Apparent death [Unknown]
  - Abdominal distension [Unknown]
  - Dizziness [Unknown]
  - Somnolence [Unknown]
